FAERS Safety Report 13089022 (Version 1)
Quarter: 2017Q1

REPORT INFORMATION
  Report Type: Spontaneous
  Country: US (occurrence: US)
  Receive Date: 20170104
  Receipt Date: 20170104
  Transmission Date: 20170428
  Serious: Yes (Hospitalization)
  Sender: FDA-Public Use
  Company Number: None

PATIENT
  Age: 43 Year
  Sex: Female
  Weight: 76 kg

DRUGS (1)
  1. OXYCONTIN [Suspect]
     Active Substance: OXYCODONE HYDROCHLORIDE
     Indication: DRUG ABUSE
     Dosage: ?          OTHER FREQUENCY:ONCE;?
     Route: 042
     Dates: start: 20161203

REACTIONS (7)
  - Schistocytosis [None]
  - Blood lactate dehydrogenase increased [None]
  - Thrombocytopenia [None]
  - Intentional product use issue [None]
  - Intentional product misuse [None]
  - Anaemia [None]
  - Haemolysis [None]

NARRATIVE: CASE EVENT DATE: 20161209
